FAERS Safety Report 20584123 (Version 1)
Quarter: 2022Q1

REPORT INFORMATION
  Report Type: Spontaneous
  Country: IN (occurrence: IN)
  Receive Date: 20220311
  Receipt Date: 20220311
  Transmission Date: 20220423
  Serious: Yes (Hospitalization)
  Sender: FDA-Public Use
  Company Number: IN-MYLANLABS-2022M1018771

PATIENT
  Age: 61 Year
  Sex: Male
  Weight: 55 kg

DRUGS (2)
  1. CISPLATIN [Suspect]
     Active Substance: CISPLATIN
     Indication: Hypopharyngeal cancer
     Dosage: 75 MILLIGRAM/SQ. METER, CYCLE
     Route: 065
     Dates: start: 2019
  2. FLUOROURACIL [Suspect]
     Active Substance: FLUOROURACIL
     Indication: Hypopharyngeal cancer
     Dosage: 750 MILLIGRAM/SQ. METER, CYCLE
     Route: 065
     Dates: start: 2019

REACTIONS (4)
  - Renal salt-wasting syndrome [Recovered/Resolved]
  - Hyponatraemic encephalopathy [Recovered/Resolved]
  - Respiratory alkalosis [Recovered/Resolved]
  - Vomiting [Recovered/Resolved]

NARRATIVE: CASE EVENT DATE: 20190101
